FAERS Safety Report 16924989 (Version 2)
Quarter: 2022Q2

REPORT INFORMATION
  Report Type: Spontaneous
  Country: US (occurrence: US)
  Receive Date: 20191016
  Receipt Date: 20220426
  Transmission Date: 20220721
  Serious: No
  Sender: FDA-Public Use
  Company Number: US-PFIZER INC-2019445061

PATIENT
  Age: 63 Year
  Sex: Female
  Weight: 68.04 kg

DRUGS (1)
  1. LYRICA [Suspect]
     Active Substance: PREGABALIN
     Indication: Fibromyalgia
     Dosage: 225 MG, 2X/DAY
     Dates: start: 2006

REACTIONS (1)
  - Nasopharyngitis [Unknown]
